FAERS Safety Report 4581129-4 (Version None)
Quarter: 2005Q1

REPORT INFORMATION
  Report Type: 
  Country: None (occurrence: None)
  Receive Date: 20050214
  Receipt Date: 20040811
  Transmission Date: 20050727
  Serious: No
  Sender: FDA-Public Use
  Company Number: US-GLAXOSMITHKLINE-A0521826A

PATIENT
  Age: 43 Year
  Sex: Female

DRUGS (6)
  1. LAMICTAL [Suspect]
     Indication: BIPOLAR DISORDER
     Dosage: 200MG PER DAY
     Route: 048
     Dates: start: 20030801
  2. PROZAC [Concomitant]
  3. NASONEX [Concomitant]
  4. DETROL [Concomitant]
  5. RISPERDAL [Concomitant]
  6. METHIMAZOLE [Concomitant]

REACTIONS (1)
  - TOOTH FRACTURE [None]
